FAERS Safety Report 23661798 (Version 2)
Quarter: 2024Q4

REPORT INFORMATION
  Report Type: Other
  Country: GB (occurrence: GB)
  Receive Date: 20240322
  Receipt Date: 20241211
  Transmission Date: 20250115
  Serious: Yes (Hospitalization, Disabling, Other)
  Sender: MACLEODS
  Company Number: None

PATIENT

DRUGS (1)
  1. PROPYLTHIOURACIL [Suspect]
     Active Substance: PROPYLTHIOURACIL
     Indication: Graves^ disease
     Dosage: 100 MILLIGRAM
     Route: 065
     Dates: start: 20231205, end: 20240208

REACTIONS (19)
  - Pneumonia [Unknown]
  - Neutropenia [Unknown]
  - Vasculitis [Recovered/Resolved with Sequelae]
  - Myalgia [Unknown]
  - Arthralgia [Unknown]
  - Ageusia [Unknown]
  - Feeling cold [Unknown]
  - Headache [Unknown]
  - Somnolence [Unknown]
  - Pyrexia [Unknown]
  - Weight decreased [Unknown]
  - Decreased appetite [Unknown]
  - Alopecia [Unknown]
  - Chills [Unknown]
  - Fatigue [Unknown]
  - Vomiting [Unknown]
  - Eye pain [Unknown]
  - Night sweats [Unknown]
  - Asthenia [Unknown]

NARRATIVE: CASE EVENT DATE: 20231205
